FAERS Safety Report 7520751-X (Version None)
Quarter: 2011Q2

REPORT INFORMATION
  Report Type: 
  Country: None (occurrence: None)
  Receive Date: 20110603
  Receipt Date: 20101203
  Transmission Date: 20111010
  Serious: Yes (Hospitalization)
  Sender: FDA-Public Use
  Company Number: US-BAYER-2010-000611

PATIENT
  Age: 70 Year
  Sex: Female
  Weight: 57 kg

DRUGS (10)
  1. NEXAVAR [Suspect]
     Dosage: 200 MG, BID
     Dates: start: 20100906, end: 20101125
  2. DEXAMETHASONE SODIUM POSPHATE [Concomitant]
     Indication: PAIN
     Dosage: UNK
     Dates: start: 20101118
  3. MOVICOL [MACROGOL,POTASSIUM CHLORIDE,SODIUM BICARBONATE,SODIUM CHLORID [Concomitant]
     Indication: CONSTIPATION
     Dosage: UNK
     Dates: start: 20100811
  4. OMEPRAZOLE [Concomitant]
     Indication: GASTROINTESTINAL ULCER
  5. NEXAVAR [Suspect]
     Indication: RENAL CELL CARCINOMA
     Dosage: 400 MG, BID
     Route: 048
     Dates: start: 20100728, end: 20100820
  6. NEXAVAR [Suspect]
     Dosage: 200 MG, UNK
     Dates: start: 20101201
  7. LEVOTHYROXINE SODIUM [Concomitant]
     Indication: HYPOTHYROIDISM
     Dosage: UNK
     Dates: start: 20090615
  8. SEVREDOL [Concomitant]
     Indication: PAIN
     Dosage: UNK
  9. AMLODIPINE [Concomitant]
     Indication: HYPERTENSION
     Dosage: UNK
     Dates: start: 20070101
  10. MORPHINE [Concomitant]
     Indication: PAIN
     Dosage: UNK
     Dates: start: 20100605

REACTIONS (1)
  - CONVULSION [None]
